FAERS Safety Report 6842566-8 (Version None)
Quarter: 2010Q3

REPORT INFORMATION
  Report Type: 
  Country: None (occurrence: None)
  Receive Date: 20100714
  Receipt Date: 20070730
  Transmission Date: 20110219
  Serious: No
  Sender: FDA-Public Use
  Company Number: US-PFIZER INC-2007064789

PATIENT
  Sex: Male
  Weight: 90 kg

DRUGS (7)
  1. CHANTIX [Suspect]
     Indication: SMOKING CESSATION THERAPY
     Dates: start: 20070724
  2. XANAX [Interacting]
     Indication: SLEEP DISORDER
     Dates: start: 20060101
  3. COREG [Concomitant]
  4. MICRONASE [Concomitant]
  5. GLUCOPHAGE [Concomitant]
  6. ACETYLSALICYLIC ACID [Concomitant]
  7. PRILOSEC [Concomitant]

REACTIONS (2)
  - DIZZINESS [None]
  - DRUG INTERACTION [None]
